FAERS Safety Report 13861191 (Version 2)
Quarter: 2017Q3

REPORT INFORMATION
  Report Type: Report from Study
  Country: JP (occurrence: JP)
  Receive Date: 20170811
  Receipt Date: 20170831
  Transmission Date: 20171127
  Serious: Yes (Hospitalization)
  Sender: FDA-Public Use
  Company Number: JP-ASTRAZENECA-2017SE81692

PATIENT
  Age: 68 Year
  Sex: Female

DRUGS (2)
  1. TAGRISSO [Suspect]
     Active Substance: OSIMERTINIB
     Indication: NON-SMALL CELL LUNG CANCER
     Route: 048
     Dates: start: 20160726, end: 20170516
  2. TAGRISSO [Suspect]
     Active Substance: OSIMERTINIB
     Indication: NON-SMALL CELL LUNG CANCER
     Route: 048
     Dates: start: 20170612

REACTIONS (8)
  - Paronychia [Recovering/Resolving]
  - Rash [Recovered/Resolved]
  - Decreased appetite [Recovered/Resolved]
  - Cystitis [Recovered/Resolved]
  - Muscle spasms [Recovering/Resolving]
  - Oedema peripheral [Recovered/Resolved]
  - Blood creatine phosphokinase increased [Recovering/Resolving]
  - Stomatitis [Recovered/Resolved]

NARRATIVE: CASE EVENT DATE: 20160808
